FAERS Safety Report 11835225 (Version 1)
Quarter: 2015Q4

REPORT INFORMATION
  Report Type: Spontaneous
  Country: JP (occurrence: JP)
  Receive Date: 20151215
  Receipt Date: 20151215
  Transmission Date: 20160305
  Serious: Yes (Life-Threatening, Hospitalization, Other)
  Sender: FDA-Public Use
  Company Number: JP-AMGEN-JPNSP2015125342

PATIENT
  Age: 82 Year
  Sex: Female
  Weight: 30 kg

DRUGS (16)
  1. ENBREL [Suspect]
     Active Substance: ETANERCEPT
     Indication: RHEUMATOID ARTHRITIS
     Dosage: 25 MG, WEEKLY
     Route: 058
     Dates: start: 20130613, end: 201312
  2. BREDININ [Concomitant]
     Active Substance: MIZORIBINE
     Dosage: 100 MG, DAILY
     Dates: start: 20121101
  3. PREDNISOLONE. [Concomitant]
     Active Substance: PREDNISOLONE
     Dosage: 4 MG, DAILY
     Dates: start: 20120927
  4. ENBREL [Suspect]
     Active Substance: ETANERCEPT
     Dosage: 25 MG, 2X/WEEK
     Route: 058
     Dates: start: 20131219, end: 20141030
  5. BREDININ [Concomitant]
     Active Substance: MIZORIBINE
     Dosage: 50 MG, DAILY
     Dates: start: 20120823
  6. METOLATE [Concomitant]
     Active Substance: METHOTREXATE
     Dosage: 4 MG, WEEKLY
     Dates: start: 20120614
  7. METOLATE [Concomitant]
     Active Substance: METHOTREXATE
     Dosage: 8 MG, WEEKLY
     Dates: start: 20120719
  8. METOLATE [Concomitant]
     Active Substance: METHOTREXATE
     Dosage: 10 MG, WEEKLY
     Dates: start: 20121101
  9. RIMATIL [Concomitant]
     Active Substance: BUCILLAMINE
     Dosage: 100 MG, DAILY
     Dates: start: 20120614, end: 20150402
  10. FOLIC ACID. [Concomitant]
     Active Substance: FOLIC ACID
     Dosage: 5 MG, WEEKLY
     Dates: start: 20120719
  11. METOLATE [Concomitant]
     Active Substance: METHOTREXATE
     Dosage: 12 MG, WEEKLY
     Dates: start: 20150402, end: 2015
  12. METOLATE [Concomitant]
     Active Substance: METHOTREXATE
     Dosage: 12 MG, WEEKLY
     Dates: start: 2015
  13. ENBREL [Suspect]
     Active Substance: ETANERCEPT
     Dosage: 25 MG, 2X/WEEK
     Route: 058
     Dates: start: 20141225, end: 2015
  14. PREDNISOLONE. [Concomitant]
     Active Substance: PREDNISOLONE
     Dosage: 6 MG, DAILY
     Dates: start: 20130124
  15. ENBREL [Suspect]
     Active Substance: ETANERCEPT
     Dosage: UNK
     Route: 065
     Dates: start: 20150827, end: 201509
  16. PREDNISOLONE. [Concomitant]
     Active Substance: PREDNISOLONE
     Dosage: 4 MG, DAILY

REACTIONS (10)
  - Hyperthermia [Unknown]
  - Pyrexia [Recovered/Resolved]
  - Decreased appetite [Unknown]
  - Pulmonary tuberculosis [Unknown]
  - Pneumothorax [Unknown]
  - Fungal infection [Unknown]
  - Proteinuria [Unknown]
  - Breath sounds abnormal [Unknown]
  - Bronchitis [Unknown]
  - Productive cough [Unknown]

NARRATIVE: CASE EVENT DATE: 20141030
